FAERS Safety Report 7793682-8 (Version None)
Quarter: 2011Q4

REPORT INFORMATION
  Report Type: 
  Country: None (occurrence: None)
  Receive Date: 20111003
  Receipt Date: 20110923
  Transmission Date: 20120403
  Serious: Yes (Other)
  Sender: FDA-Public Use
  Company Number: US-US-EMD SERONO, INC.-7085417

PATIENT
  Sex: Female

DRUGS (3)
  1. REBIF [Suspect]
     Indication: MULTIPLE SCLEROSIS
     Route: 058
     Dates: start: 20030429
  2. VESICARE [Concomitant]
     Indication: MICTURITION URGENCY
  3. VESICARE [Concomitant]
     Indication: URINARY INCONTINENCE

REACTIONS (3)
  - CATARACT [None]
  - OPTIC NERVE DISORDER [None]
  - MEMORY IMPAIRMENT [None]
